FAERS Safety Report 21091933 (Version 7)
Quarter: 2022Q3

REPORT INFORMATION
  Report Type: Report from Study
  Country: US (occurrence: US)
  Receive Date: 20220717
  Receipt Date: 20220908
  Transmission Date: 20221027
  Serious: No
  Sender: FDA-Public Use
  Company Number: US-NOVARTISTESTPH-NVSC2022US161850

PATIENT
  Sex: Female

DRUGS (7)
  1. PIQRAY [Suspect]
     Active Substance: ALPELISIB
     Indication: Breast cancer
     Dosage: 300 MG, QD
     Route: 048
     Dates: start: 202201
  2. PIQRAY [Suspect]
     Active Substance: ALPELISIB
     Dosage: 300 MG, QD
     Route: 065
  3. FULVESTRANT [Suspect]
     Active Substance: FULVESTRANT
     Indication: Product used for unknown indication
     Route: 065
  4. ACYCLOVIR [Concomitant]
     Active Substance: ACYCLOVIR
     Indication: Product used for unknown indication
     Route: 065
  5. ZYRTEC [Concomitant]
     Active Substance: CETIRIZINE HYDROCHLORIDE
     Indication: Product used for unknown indication
     Route: 065
  6. TUMS [Concomitant]
     Active Substance: CALCIUM CARBONATE
     Indication: Product used for unknown indication
     Route: 065
  7. CHOLESTEROL [Concomitant]
     Active Substance: CHOLESTEROL
     Indication: Product used for unknown indication
     Route: 065

REACTIONS (13)
  - Oral herpes [Unknown]
  - Rash vesicular [Recovered/Resolved]
  - Dry mouth [Unknown]
  - Memory impairment [Unknown]
  - Swollen tongue [Unknown]
  - Scab [Unknown]
  - Alopecia [Unknown]
  - Fatigue [Unknown]
  - Thirst [Unknown]
  - Micturition disorder [Unknown]
  - Dysphonia [Unknown]
  - Hypersensitivity [Unknown]
  - Product outer packaging issue [Unknown]
